FAERS Safety Report 10218435 (Version 1)
Quarter: 2014Q2

REPORT INFORMATION
  Report Type: Report from Study
  Country: AR (occurrence: AR)
  Receive Date: 20140605
  Receipt Date: 20140605
  Transmission Date: 20141212
  Serious: Yes (Other)
  Sender: FDA-Public Use
  Company Number: PHHY2014AR066617

PATIENT
  Age: 21 Year
  Sex: Male

DRUGS (2)
  1. MYFORTIC [Suspect]
  2. LEVOFLOXACINA [Concomitant]
     Dosage: 500 MG, UNK
     Route: 048

REACTIONS (4)
  - Drug dependence [Unknown]
  - Gastroenteritis [Recovered/Resolved]
  - Pyrexia [Recovered/Resolved]
  - Diarrhoea [Recovered/Resolved]
